FAERS Safety Report 15859045 (Version 1)
Quarter: 2018Q4

REPORT INFORMATION
  Report Type: Spontaneous
  Country: US (occurrence: US)
  Receive Date: 20181231
  Receipt Date: 20181231
  Transmission Date: 20190205
  Serious: Yes (Hospitalization)
  Sender: FDA-Public Use
  Company Number: None

PATIENT
  Age: 71 Year
  Sex: Female
  Weight: 70 kg

DRUGS (1)
  1. CISPLATIN. [Suspect]
     Active Substance: CISPLATIN
     Dates: end: 20181226

REACTIONS (6)
  - Swelling [None]
  - Hypersensitivity [None]
  - Abscess neck [None]
  - Night sweats [None]
  - Purulence [None]
  - Furuncle [None]

NARRATIVE: CASE EVENT DATE: 20181226
